FAERS Safety Report 16729585 (Version 1)
Quarter: 2019Q3

REPORT INFORMATION
  Report Type: Spontaneous
  Country: DE (occurrence: DE)
  Receive Date: 20190822
  Receipt Date: 20190822
  Transmission Date: 20191005
  Serious: Yes (Death, Hospitalization)
  Sender: FDA-Public Use
  Company Number: DE-BAYER-2019-154879

PATIENT
  Age: 89 Year
  Sex: Female
  Weight: 100 kg

DRUGS (2)
  1. BENSERAZIDE HYDROCHLORIDE;LEVODOPA [Concomitant]
     Active Substance: BENSERAZIDE HYDROCHLORIDE\LEVODOPA
     Indication: PARKINSONISM
     Dosage: 3 DF, TID
     Route: 048
  2. CIPROFLOXACIN MONOHYDROCHLORIDE [Suspect]
     Active Substance: CIPROFLOXACIN
     Indication: URINARY TRACT INFECTION
     Dosage: 2 DF, BID
     Route: 048

REACTIONS (6)
  - Myoclonus [Fatal]
  - Pneumonia aspiration [Fatal]
  - Dyskinesia [Fatal]
  - Dysphagia [Fatal]
  - Dysarthria [Fatal]
  - Aspiration [Fatal]

NARRATIVE: CASE EVENT DATE: 201908
